FAERS Safety Report 5787413-0 (Version None)
Quarter: 2008Q2

REPORT INFORMATION
  Report Type: 
  Country: None (occurrence: None)
  Receive Date: 20080625
  Receipt Date: 20080616
  Transmission Date: 20081010
  Serious: Yes (Hospitalization)
  Sender: FDA-Public Use
  Company Number: US-BAYER-200812498BCC

PATIENT
  Age: 80 Year
  Sex: Female
  Weight: 68 kg

DRUGS (15)
  1. ALEVE [Suspect]
     Indication: TRIGGER FINGER
     Dosage: UNIT DOSE: 220 MG
     Route: 048
     Dates: start: 20080606, end: 20080606
  2. ALEVE [Suspect]
     Dosage: UNIT DOSE: 220 MG
     Route: 048
     Dates: start: 20080607, end: 20080609
  3. ALEVE [Suspect]
     Dosage: UNIT DOSE: 220 MG
     Route: 048
     Dates: start: 20080610
  4. ONE A DAY WOMEN'S VITAMIN [Suspect]
     Indication: DRUG USE FOR UNKNOWN INDICATION
     Dosage: AS USED: 1 DF
     Route: 048
     Dates: start: 20080610
  5. EPINEPHRINE [Suspect]
     Indication: DRUG USE FOR UNKNOWN INDICATION
     Dates: start: 20080610
  6. SYNTHROID [Concomitant]
  7. BENICAR [Concomitant]
  8. SIMVASTATIN [Concomitant]
  9. VESICARE [Concomitant]
  10. EQUATE ASPIRIN [Concomitant]
  11. MIRALAX [Concomitant]
  12. GLUCOSAMINE [Concomitant]
  13. OMEGA 3 AND 6 [Concomitant]
  14. WALGREENS CALCIUM [Concomitant]
  15. ASCORBIC ACID [Concomitant]

REACTIONS (4)
  - ABDOMINAL PAIN UPPER [None]
  - BLOOD PRESSURE SYSTOLIC INCREASED [None]
  - NAUSEA [None]
  - NERVOUSNESS [None]
